FAERS Safety Report 8168525-3 (Version None)
Quarter: 2012Q1

REPORT INFORMATION
  Report Type: 
  Country: None (occurrence: None)
  Receive Date: 20120227
  Receipt Date: 20120227
  Transmission Date: 20120608
  Serious: Yes (Other)
  Sender: FDA-Public Use
  Company Number: None

PATIENT
  Sex: Female
  Weight: 108.86 kg

DRUGS (1)
  1. SELENIUM SULFIDE [Suspect]
     Indication: SEBORRHOEA
     Dates: start: 20120131, end: 20120203

REACTIONS (1)
  - URTICARIA [None]
